FAERS Safety Report 8270814-9 (Version None)
Quarter: 2012Q2

REPORT INFORMATION
  Report Type: 
  Country: None (occurrence: None)
  Receive Date: 20120410
  Receipt Date: 20120403
  Transmission Date: 20120825
  Serious: Yes (Other)
  Sender: FDA-Public Use
  Company Number: US-PFIZER INC-2012084861

PATIENT
  Sex: Female
  Weight: 40.816 kg

DRUGS (3)
  1. AZITHROMYCIN [Suspect]
     Indication: BRONCHITIS
     Dosage: 1200 MG, UNK
     Route: 048
     Dates: start: 20110101
  2. AZITHROMYCIN [Suspect]
     Indication: PNEUMONIA
     Dosage: 1200 MG, UNK
     Route: 048
  3. AZITHROMYCIN [Suspect]
     Indication: SINUS DISORDER

REACTIONS (3)
  - BRONCHITIS [None]
  - SINUS DISORDER [None]
  - HELICOBACTER TEST POSITIVE [None]
